FAERS Safety Report 9748243 (Version 1)
Quarter: 2013Q4

REPORT INFORMATION
  Report Type: Spontaneous
  Country: US (occurrence: None)
  Receive Date: 20131209
  Receipt Date: 20131209
  Transmission Date: 20140711
  Serious: Yes (Hospitalization, Other)
  Sender: FDA-Public Use
  Company Number: DAV-AE-MTX-13-63

PATIENT
  Age: 35 Year
  Sex: Male

DRUGS (1)
  1. METHOTREXATE [Suspect]
     Indication: ACUTE MYELOID LEUKAEMIA
     Dosage: INTRATHECAL

REACTIONS (6)
  - Guillain-Barre syndrome [None]
  - Paresis [None]
  - Paraesthesia [None]
  - Quadriplegia [None]
  - Dysphagia [None]
  - Areflexia [None]
